FAERS Safety Report 4680052-4 (Version None)
Quarter: 2005Q2

REPORT INFORMATION
  Report Type: 
  Country: None (occurrence: None)
  Receive Date: 20050531
  Receipt Date: 20050516
  Transmission Date: 20051028
  Serious: Yes (Hospitalization, Other)
  Sender: FDA-Public Use
  Company Number: 2005076786

PATIENT
  Age: 84 Year
  Sex: Female

DRUGS (11)
  1. ALDACTONE [Suspect]
     Indication: ILL-DEFINED DISORDER
     Dosage: 25 MG (25 MG, 1 IN 48 HR), ORAL
     Route: 048
     Dates: start: 20050421, end: 20050425
  2. FUROSEMIDE [Suspect]
     Indication: ILL-DEFINED DISORDER
     Dosage: 20 MG (40 MG, DAILY), ORAL
     Route: 048
     Dates: start: 20050415
  3. VALSARTAN [Suspect]
     Indication: ILL-DEFINED DISORDER
     Dosage: 2 TABLETS (80 MG, DAILY), ORAL
     Route: 048
     Dates: start: 20050421, end: 20050426
  4. RAMIPRIL [Concomitant]
  5. PLAVIX [Concomitant]
  6. KARDEGIC (ACETYLSALICYLATE LYSINE) [Concomitant]
  7. PRAVASTATIN [Concomitant]
  8. BISOPROLOL FUMARATE [Concomitant]
  9. LYSANXIA (PRAZEPAM) [Concomitant]
  10. TANAKAN (GINKGO BILOBA EXTRACT) [Concomitant]
  11. ENDOTELON (HERBAL EXTRACTS NOS, VITIS VINIFERA) [Concomitant]

REACTIONS (6)
  - C-REACTIVE PROTEIN INCREASED [None]
  - EOSINOPHILIA [None]
  - PRURITUS [None]
  - PSYCHOMOTOR RETARDATION [None]
  - RENAL FAILURE ACUTE [None]
  - SKIN LESION [None]
